FAERS Safety Report 21948365 (Version 3)
Quarter: 2023Q1

REPORT INFORMATION
  Report Type: Spontaneous
  Country: US (occurrence: US)
  Receive Date: 20230203
  Receipt Date: 20230210
  Transmission Date: 20230418
  Serious: No
  Sender: FDA-Public Use
  Company Number: US-UNITED THERAPEUTICS-UNT-2023-002854

PATIENT
  Age: 58 Year
  Sex: Female
  Weight: 71.655 kg

DRUGS (4)
  1. REMODULIN [Suspect]
     Active Substance: TREPROSTINIL
     Indication: Pulmonary arterial hypertension
     Dosage: 0.0414 ?G/KG (PHARMACY PREFILLED WITH 1.8 ML/PER CASSETTE AT PUMP RATE 18 MCL/HOUR), CONTINUING
     Route: 058
  2. REMODULIN [Suspect]
     Active Substance: TREPROSTINIL
     Dosage: UNK, CONTINUING
     Route: 058
     Dates: start: 20221003
  3. OPSUMIT [Concomitant]
     Active Substance: MACITENTAN
     Indication: Product used for unknown indication
     Dosage: UNK
     Route: 065
  4. WARFARIN SODIUM [Concomitant]
     Active Substance: WARFARIN SODIUM
     Indication: Product used for unknown indication
     Dosage: UNK
     Route: 065

REACTIONS (16)
  - Infusion site pain [Unknown]
  - Infusion site rash [Unknown]
  - Pain [Unknown]
  - Headache [Recovered/Resolved]
  - Stress [Unknown]
  - Dyspnoea [Unknown]
  - Flushing [Unknown]
  - Product administration interrupted [Recovered/Resolved]
  - Device dislocation [Recovered/Resolved]
  - Device leakage [Unknown]
  - Device infusion issue [Unknown]
  - Erythema [Recovered/Resolved]
  - Device leakage [Unknown]
  - Device infusion issue [Unknown]
  - Infusion site swelling [Unknown]
  - Infusion site extravasation [Unknown]

NARRATIVE: CASE EVENT DATE: 20230101
